FAERS Safety Report 7738692-1 (Version None)
Quarter: 2011Q3

REPORT INFORMATION
  Report Type: 
  Country: None (occurrence: None)
  Receive Date: 20110908
  Receipt Date: 20110902
  Transmission Date: 20111222
  Serious: Yes (Other)
  Sender: FDA-Public Use
  Company Number: US-PFIZER INC-2003008839

PATIENT
  Sex: Female
  Weight: 74.84 kg

DRUGS (6)
  1. CALCIUM WITH VITAMIN D [Concomitant]
     Dosage: UNK
  2. TOCOPHEROL CONCENTRATE CAP [Concomitant]
     Dosage: UNK
  3. NEURONTIN [Suspect]
     Indication: PAIN
     Dosage: 300 MG, 2X/DAY
     Route: 048
     Dates: end: 20030201
  4. NEURONTIN [Suspect]
     Indication: MUSCLE SPASMS
  5. FOSAMAX [Concomitant]
     Dosage: 80MG
  6. ASCORBIC ACID [Concomitant]
     Dosage: UNK

REACTIONS (2)
  - PAIN [None]
  - INSOMNIA [None]
